FAERS Safety Report 9601202 (Version 1)
Quarter: 2013Q4

REPORT INFORMATION
  Report Type: Report from Study
  Country: PL (occurrence: PL)
  Receive Date: 20131005
  Receipt Date: 20131005
  Transmission Date: 20140711
  Serious: Yes (Hospitalization)
  Sender: FDA-Public Use
  Company Number: PL-ROCHE-1285080

PATIENT
  Age: 68 Year
  Sex: Female
  Weight: 80 kg

DRUGS (2)
  1. RITUXIMAB [Suspect]
     Indication: RHEUMATOID ARTHRITIS
     Dosage: EVERY SIX MONTH
     Route: 042
     Dates: start: 20110908
  2. METHOTREXATE [Concomitant]
     Indication: RHEUMATOID ARTHRITIS
     Route: 048
     Dates: start: 2006

REACTIONS (1)
  - Pulmonary embolism [Recovered/Resolved]
